FAERS Safety Report 19513272 (Version 2)
Quarter: 2021Q3

REPORT INFORMATION
  Report Type: Spontaneous
  Country: TW (occurrence: TW)
  Receive Date: 20210709
  Receipt Date: 20210714
  Transmission Date: 20211014
  Serious: Yes (Other)
  Sender: FDA-Public Use
  Company Number: TW-PFIZER INC-2021800532

PATIENT
  Age: 42 Year
  Sex: Female

DRUGS (1)
  1. SILDENAFIL CITRATE. [Suspect]
     Active Substance: SILDENAFIL CITRATE
     Dosage: 100 MG (SUICIDE ATTEMPT WITH 20 TABLETS OF SILDENAFIL (100 MG/ TABLET))

REACTIONS (2)
  - Electrocardiogram ST-T change [Recovered/Resolved]
  - Overdose [Recovered/Resolved]
